FAERS Safety Report 14380307 (Version 1)
Quarter: 2018Q1

REPORT INFORMATION
  Report Type: Spontaneous
  Country: US (occurrence: US)
  Receive Date: 20180112
  Receipt Date: 20180112
  Transmission Date: 20180509
  Serious: Yes (Other)
  Sender: FDA-Public Use
  Company Number: US-JNJFOC-20180103669

PATIENT
  Age: 75 Year
  Sex: Female
  Weight: 66.68 kg

DRUGS (3)
  1. DILTIAZEM. [Concomitant]
     Active Substance: DILTIAZEM
     Route: 065
  2. XARELTO [Suspect]
     Active Substance: RIVAROXABAN
     Indication: CEREBROVASCULAR ACCIDENT PROPHYLAXIS
     Route: 048
     Dates: start: 2011
  3. XARELTO [Suspect]
     Active Substance: RIVAROXABAN
     Indication: ATRIAL FIBRILLATION
     Route: 048
     Dates: start: 2011

REACTIONS (8)
  - Upper respiratory tract infection [Not Recovered/Not Resolved]
  - Memory impairment [Unknown]
  - Fibromyalgia [Unknown]
  - Autoimmune thyroiditis [Unknown]
  - Infectious mononucleosis [Unknown]
  - Body height decreased [Unknown]
  - Bone neoplasm [Recovered/Resolved]
  - Chronic fatigue syndrome [Unknown]

NARRATIVE: CASE EVENT DATE: 201401
